FAERS Safety Report 8317781-7 (Version None)
Quarter: 2012Q2

REPORT INFORMATION
  Report Type: 
  Country: None (occurrence: None)
  Receive Date: 20120427
  Receipt Date: 20120424
  Transmission Date: 20120825
  Serious: Yes (Hospitalization, Disabling, Other)
  Sender: FDA-Public Use
  Company Number: US-PFIZER INC-2010091171

PATIENT
  Sex: Female
  Weight: 72.562 kg

DRUGS (6)
  1. SUTENT [Suspect]
     Dosage: 37.5 MG, 1X/DAY, 4/2 SCHEDULE
     Route: 048
  2. SUTENT [Suspect]
     Dosage: UNK
  3. SUTENT [Suspect]
     Indication: METASTATIC RENAL CELL CARCINOMA
     Dosage: 50 MG, 1X/DAY, X 28 DAYS Q 42 DAYS
     Route: 048
     Dates: start: 20100601
  4. LISINOPRIL [Concomitant]
     Indication: HYPERTENSION
     Dosage: 40 MG, UNK
  5. ATENOLOL [Concomitant]
     Indication: HYPERTENSION
     Dosage: 40 MG, UNK
  6. NIFEDIPINE [Concomitant]
     Indication: HYPERTENSION
     Dosage: 9 MG, UNK

REACTIONS (25)
  - BLOOD SODIUM DECREASED [None]
  - LIVER FUNCTION TEST ABNORMAL [None]
  - DIZZINESS [None]
  - ASTHENIA [None]
  - SKIN IRRITATION [None]
  - YELLOW SKIN [None]
  - PANCREATITIS [None]
  - DIARRHOEA [None]
  - PAIN IN EXTREMITY [None]
  - SPEECH DISORDER [None]
  - WEIGHT INCREASED [None]
  - BLINDNESS [None]
  - GASTRIC DISORDER [None]
  - VOMITING [None]
  - DECREASED APPETITE [None]
  - FLUID RETENTION [None]
  - CHOLECYSTITIS [None]
  - ANAEMIA [None]
  - PLATELET COUNT DECREASED [None]
  - NAUSEA [None]
  - WALKING DISABILITY [None]
  - DYSPEPSIA [None]
  - DYSGEUSIA [None]
  - BRONCHITIS [None]
  - FATIGUE [None]
